FAERS Safety Report 13747033 (Version 1)
Quarter: 2017Q3

REPORT INFORMATION
  Report Type: Spontaneous
  Country: US (occurrence: US)
  Receive Date: 20170712
  Receipt Date: 20170712
  Transmission Date: 20171127
  Serious: Yes (Other)
  Sender: FDA-Public Use
  Company Number: US-BAYER-2017-129254

PATIENT
  Sex: Female

DRUGS (1)
  1. COPPERTONE SPORT CONTINUOUS SPF 100 PLUS [Suspect]
     Active Substance: AVOBENZONE\HOMOSALATE\OCTINOXATE\OCTISALATE\OCTOCRYLENE\OXYBENZONE
     Route: 031

REACTIONS (4)
  - Blindness [Unknown]
  - Exposure via eye contact [Unknown]
  - Chemical burns of eye [Unknown]
  - Ocular hyperaemia [Unknown]
